FAERS Safety Report 19026860 (Version 1)
Quarter: 2021Q1

REPORT INFORMATION
  Report Type: Spontaneous
  Country: US (occurrence: US)
  Receive Date: 20210318
  Receipt Date: 20210318
  Transmission Date: 20210420
  Serious: Yes (Hospitalization, Other)
  Sender: FDA-Public Use
  Company Number: US-FRESENIUS KABI-FK202102500

PATIENT
  Age: 63 Year
  Sex: Male

DRUGS (3)
  1. RUCAPARIB [Suspect]
     Active Substance: RUCAPARIB
     Indication: COLON CANCER
     Dosage: BID
     Route: 065
     Dates: start: 20201016, end: 20201115
  2. FLUOROURACIL (MANUFACTURER UNKNOWN) [Suspect]
     Active Substance: FLUOROURACIL
     Indication: COLON CANCER
     Dosage: EVERY 2 WEEKS
     Route: 042
     Dates: end: 20201119
  3. IRINOTECAN [Suspect]
     Active Substance: IRINOTECAN
     Indication: COLON CANCER
     Dosage: EVERY 2 WEEKS?NAL?IRI
     Route: 042
     Dates: start: 20201016, end: 20201119

REACTIONS (1)
  - Intestinal obstruction [Recovered/Resolved]
